FAERS Safety Report 8993638 (Version 1)
Quarter: 2013Q1

REPORT INFORMATION
  Report Type: Spontaneous
  Country: FR (occurrence: FR)
  Receive Date: 20130102
  Receipt Date: 20130102
  Transmission Date: 20140127
  Serious: Yes (Other)
  Sender: FDA-Public Use
  Company Number: PHHY2012FR117757

PATIENT
  Age: 36 Year
  Sex: Male

DRUGS (1)
  1. TOBI PODHALER [Suspect]
     Dosage: 112 MG, BID
     Dates: start: 20120717, end: 20120717

REACTIONS (1)
  - Incorrect dose administered [Not Recovered/Not Resolved]
